FAERS Safety Report 26217510 (Version 1)
Quarter: 2025Q4

REPORT INFORMATION
  Report Type: Spontaneous
  Country: CN (occurrence: CN)
  Receive Date: 20251231
  Receipt Date: 20251231
  Transmission Date: 20260118
  Serious: Yes (Other)
  Sender: IDORSIA PHARMACEUTICALS
  Company Number: CN-ADR-14526060946847170563898

PATIENT
  Age: 23 Year
  Sex: Female
  Weight: 49 kg

DRUGS (1)
  1. QUVIVIQ [Suspect]
     Active Substance: DARIDOREXANT
     Indication: Insomnia
     Dosage: 5 TABLETS OF 50 MG
     Route: 048
     Dates: start: 20251218, end: 20251218

REACTIONS (2)
  - Overdose [Recovering/Resolving]
  - Somnolence [Recovering/Resolving]

NARRATIVE: CASE EVENT DATE: 20251218
